FAERS Safety Report 14164790 (Version 1)
Quarter: 2017Q4

REPORT INFORMATION
  Report Type: Spontaneous
  Country: CN (occurrence: CN)
  Receive Date: 20171107
  Receipt Date: 20171107
  Transmission Date: 20180321
  Serious: Yes (Other)
  Sender: FDA-Public Use
  Company Number: CN-PFIZER INC-2017477786

PATIENT
  Age: 6 Year
  Sex: Female
  Weight: 24 kg

DRUGS (1)
  1. CEFOPERAZONE SODIUM [Suspect]
     Active Substance: CEFOPERAZONE SODIUM
     Indication: URINARY TRACT INFECTION
     Dosage: 1 G, 2X/DAY
     Route: 041
     Dates: start: 20170831, end: 20170901

REACTIONS (5)
  - Chills [Recovered/Resolved]
  - Hypoaesthesia [Recovered/Resolved]
  - Cyanosis [Recovered/Resolved]
  - Chest discomfort [Recovered/Resolved]
  - Palpitations [Recovered/Resolved]

NARRATIVE: CASE EVENT DATE: 20170831
